FAERS Safety Report 4581417-1 (Version None)
Quarter: 2005Q1

REPORT INFORMATION
  Report Type: 
  Country: None (occurrence: None)
  Receive Date: 20050214
  Receipt Date: 20041018
  Transmission Date: 20050727
  Serious: Yes (Life-Threatening, Hospitalization, Other)
  Sender: FDA-Public Use
  Company Number: US-GLAXOSMITHKLINE-A0530344A

PATIENT
  Age: 45 Year
  Sex: Male

DRUGS (2)
  1. LAMICTAL [Suspect]
     Indication: BIPOLAR DISORDER
     Route: 048
     Dates: start: 20040901, end: 20041014
  2. NO CONCURRENT MEDICATIONS [Concomitant]

REACTIONS (2)
  - ORAL SOFT TISSUE DISORDER [None]
  - SWOLLEN TONGUE [None]
